FAERS Safety Report 17291527 (Version 1)
Quarter: 2020Q1

REPORT INFORMATION
  Report Type: Report from Study
  Country: US (occurrence: US)
  Receive Date: 20200121
  Receipt Date: 20200121
  Transmission Date: 20200409
  Serious: Yes (Other)
  Sender: FDA-Public Use
  Company Number: US-BAYER-2019-185995

PATIENT
  Age: 63 Year
  Sex: Male

DRUGS (3)
  1. WARFARIN [Concomitant]
     Active Substance: WARFARIN
     Dosage: UNK
  2. STIVARGA [Suspect]
     Active Substance: REGORAFENIB
     Indication: COLORECTAL CANCER
     Dosage: 160 MG DAILY, THROUGH 21/28 DAYS
     Route: 048
     Dates: start: 20191001
  3. STIVARGA [Suspect]
     Active Substance: REGORAFENIB
     Indication: CARCINOID TUMOUR

REACTIONS (10)
  - Anxiety [None]
  - Depression [None]
  - Peripheral vascular disorder [None]
  - Abdominal discomfort [Not Recovered/Not Resolved]
  - Thrombophlebitis [None]
  - Pain in extremity [None]
  - Anaemia [None]
  - Oedema peripheral [None]
  - Hypertension [None]
  - Diarrhoea [Not Recovered/Not Resolved]
